FAERS Safety Report 8278466-9 (Version None)
Quarter: 2012Q2

REPORT INFORMATION
  Report Type: 
  Country: None (occurrence: None)
  Receive Date: 20120412
  Receipt Date: 20111230
  Transmission Date: 20120825
  Serious: No
  Sender: FDA-Public Use
  Company Number: US-ASTRAZENECA-2012SE00182

PATIENT
  Age: 64 Year
  Sex: Female
  Weight: 65.3 kg

DRUGS (5)
  1. UNISOM OTC [Concomitant]
     Indication: SEDATIVE THERAPY
  2. VITAMIN B COMPLEX CAP [Concomitant]
  3. VESICARE [Concomitant]
     Indication: BLADDER DISORDER
  4. NEXIUM [Suspect]
     Indication: GASTROOESOPHAGEAL REFLUX DISEASE
     Route: 048
  5. TRAZODONE HCL [Concomitant]
     Indication: SLEEP DISORDER

REACTIONS (3)
  - GASTROOESOPHAGEAL REFLUX DISEASE [None]
  - ALOPECIA [None]
  - DRUG DOSE OMISSION [None]
